FAERS Safety Report 7408184-8 (Version None)
Quarter: 2011Q2

REPORT INFORMATION
  Report Type: 
  Country: None (occurrence: None)
  Receive Date: 20110401
  Receipt Date: 20110328
  Transmission Date: 20111010
  Serious: Yes (Hospitalization)
  Sender: FDA-Public Use
  Company Number: WAES 1103USA03551

PATIENT
  Age: 66 Year
  Sex: Male
  Weight: 89.8122 kg

DRUGS (10)
  1. COMTAN [Concomitant]
  2. BENADRYL [Concomitant]
  3. LIPITOR [Concomitant]
  4. HYDROMORPHONE [Concomitant]
  5. SINEMET [Suspect]
     Indication: PARKINSON'S DISEASE
     Dosage: 25-100 MG/PRN/PO
     Route: 048
     Dates: start: 20100825
  6. PLACEBO [Suspect]
     Indication: PARKINSON'S DISEASE
     Dosage: Q3H/PO
     Route: 048
     Dates: start: 20101009
  7. CARBIDOPA + LEVODOPA [Suspect]
     Indication: PARKINSON'S DISEASE
     Dosage: 14.4 ML/DAILY/PO
     Route: 048
     Dates: start: 20101009
  8. ASPIRIN [Concomitant]
  9. CLONAZEPAM [Concomitant]
  10. BACITRACIN [Concomitant]

REACTIONS (3)
  - ATRIAL FLUTTER [None]
  - ATRIAL FIBRILLATION [None]
  - ARRHYTHMIA [None]
